FAERS Safety Report 4613278-6 (Version None)
Quarter: 2005Q1

REPORT INFORMATION
  Report Type: 
  Country: None (occurrence: None)
  Receive Date: 20050315
  Receipt Date: 20030102
  Transmission Date: 20050727
  Serious: Yes (Hospitalization)
  Sender: FDA-Public Use
  Company Number: 4740

PATIENT
  Age: 74 Year
  Sex: Female

DRUGS (6)
  1. MITOMYCIN [Suspect]
     Indication: BLADDER CANCER
     Dosage: 40 MG FREQ INVES
     Dates: start: 20010711, end: 20010711
  2. MITOMYCIN [Suspect]
     Indication: NEOPLASM MALIGNANT
     Dosage: 40 MG FREQ INVES
     Dates: start: 20010711, end: 20010711
  3. TIMOLOL MALEATE [Concomitant]
  4. LATANOPROST [Concomitant]
  5. PILOCARPINE [Concomitant]
  6. BCG VACCNE [Concomitant]

REACTIONS (2)
  - ERYTHEMA [None]
  - RASH PRURITIC [None]
